FAERS Safety Report 25885761 (Version 1)
Quarter: 2025Q4

REPORT INFORMATION
  Report Type: Spontaneous
  Country: IN (occurrence: IN)
  Receive Date: 20251006
  Receipt Date: 20251006
  Transmission Date: 20260117
  Serious: Yes (Death, Hospitalization)
  Sender: PFIZER
  Company Number: IN-PFIZER INC-PV202400077283

PATIENT
  Age: 49 Year
  Sex: Male

DRUGS (4)
  1. CRIZOTINIB [Suspect]
     Active Substance: CRIZOTINIB
     Dosage: 250 MG, 2X/DAY
     Route: 048
  2. ATORVASTATIN [Concomitant]
     Active Substance: ATORVASTATIN
     Dosage: UNK
  3. ETOFYLLINE\THEOPHYLLINE [Concomitant]
     Active Substance: ETOFYLLINE\THEOPHYLLINE
     Dosage: UNK
  4. ORCIBEST [Concomitant]
     Dosage: UNK

REACTIONS (3)
  - Bradycardia [Unknown]
  - Death [Fatal]
  - Cardiac disorder [Unknown]

NARRATIVE: CASE EVENT DATE: 20251002
